FAERS Safety Report 22834679 (Version 3)
Quarter: 2023Q4

REPORT INFORMATION
  Report Type: Spontaneous
  Country: US (occurrence: US)
  Receive Date: 20230817
  Receipt Date: 20231027
  Transmission Date: 20240110
  Serious: Yes (Death, Life-Threatening, Hospitalization, Other)
  Sender: FDA-Public Use
  Company Number: US-BRISTOL-MYERS SQUIBB COMPANY-2023-114945

PATIENT
  Age: 66 Year
  Sex: Male
  Weight: 71.1 kg

DRUGS (1)
  1. ELIQUIS [Suspect]
     Active Substance: APIXABAN
     Indication: Pulmonary embolism
     Route: 048
     Dates: start: 20230510, end: 20230806

REACTIONS (23)
  - Acute respiratory failure [Fatal]
  - Pharyngeal haemorrhage [Recovered/Resolved]
  - Grief reaction [Unknown]
  - Septic shock [Unknown]
  - Pneumonia staphylococcal [Unknown]
  - Enterobacter pneumonia [Unknown]
  - Empyema [Unknown]
  - Cerebellar stroke [Unknown]
  - Atrial fibrillation [Unknown]
  - Non-small cell lung cancer metastatic [Unknown]
  - Malnutrition [Unknown]
  - Respiratory failure [Unknown]
  - Chronic obstructive pulmonary disease [Unknown]
  - Normocytic anaemia [Unknown]
  - Hyponatraemia [Unknown]
  - Major depression [Unknown]
  - Anxiety [Unknown]
  - Blood pressure systolic increased [Unknown]
  - Hypersensitivity pneumonitis [Unknown]
  - Gastrooesophageal reflux disease [Unknown]
  - Prescription drug used without a prescription [Unknown]
  - Encephalopathy [Unknown]
  - Aspiration [Unknown]

NARRATIVE: CASE EVENT DATE: 20230724
